FAERS Safety Report 8763140 (Version 1)
Quarter: 2012Q4

REPORT INFORMATION
  Report Type: 
  Country: US (occurrence: US)
  Receive Date: 20120831
  Receipt Date: 20120831
  Transmission Date: 20130627
  Serious: Yes (Hospitalization)
  Sender: FDA-Public Use
  Company Number: US-BAYER-2012-089733

PATIENT
  Age: 15 Year
  Sex: Female

DRUGS (7)
  1. YAZ [Suspect]
     Indication: ACNE
  2. YASMIN [Suspect]
  3. MINOCYCLINE [Concomitant]
  4. PREDNISONE [Concomitant]
  5. VENTOLIN HFA [Concomitant]
  6. AZITHROMYCIN [Concomitant]
  7. RESPIRATORY SYSTEM [Concomitant]

REACTIONS (1)
  - Pulmonary embolism [None]
